FAERS Safety Report 10059975 (Version 5)
Quarter: 2014Q4

REPORT INFORMATION
  Report Type: Report from Study
  Country: JP (occurrence: JP)
  Receive Date: 20140404
  Receipt Date: 20141013
  Transmission Date: 20150528
  Serious: Yes (Death, Other)
  Sender: FDA-Public Use
  Company Number: JP-ABBVIE-14P-087-1213410-00

PATIENT
  Age: 74 Year
  Sex: Male
  Weight: 54 kg

DRUGS (10)
  1. LIPACREON CAPSULES 150 MG [Suspect]
     Active Substance: PANCRELIPASE
     Indication: PANCREATIC INSUFFICIENCY
     Route: 048
     Dates: start: 20130509, end: 20130719
  2. RABEPRAZOLE SODIUM. [Concomitant]
     Active Substance: RABEPRAZOLE SODIUM
     Indication: GASTRITIS PROPHYLAXIS
  3. METOCLOPRAMIDE. [Concomitant]
     Active Substance: METOCLOPRAMIDE
     Indication: PROPHYLAXIS OF NAUSEA AND VOMITING
     Route: 048
  4. ALL OTHER THERAPEUTIC PRODUCTS [Concomitant]
     Active Substance: UNSPECIFIED INGREDIENT
     Indication: PANCREATIC CARCINOMA
  5. SITAGLIPTIN PHOSPHATE MONOHYDRATE [Concomitant]
     Indication: DISEASE COMPLICATION
  6. FUROSEMIDE. [Concomitant]
     Active Substance: FUROSEMIDE
     Indication: DISEASE COMPLICATION
     Route: 048
     Dates: start: 20130530
  7. GLIMEPIRIDE. [Concomitant]
     Active Substance: GLIMEPIRIDE
     Indication: DISEASE COMPLICATION
     Route: 048
  8. TS-1 [Suspect]
     Active Substance: GIMERACIL\OTERACIL\TEGAFUR
     Indication: PRODUCT USED FOR UNKNOWN INDICATION
     Route: 048
     Dates: start: 20130418, end: 20130709
  9. LOXOPROFEN SODIUM [Concomitant]
     Active Substance: LOXOPROFEN SODIUM
     Indication: DISEASE COMPLICATION
     Route: 048
  10. FENTANYL CITRATE. [Concomitant]
     Active Substance: FENTANYL CITRATE
     Indication: DISEASE COMPLICATION
     Dates: start: 20130621

REACTIONS (3)
  - Hypoalbuminaemia [Recovering/Resolving]
  - Diarrhoea [Recovering/Resolving]
  - Pancreatic carcinoma [Fatal]

NARRATIVE: CASE EVENT DATE: 20130702
